FAERS Safety Report 7536988-X (Version None)
Quarter: 2011Q2

REPORT INFORMATION
  Report Type: 
  Country: None (occurrence: None)
  Receive Date: 20110609
  Receipt Date: 20110530
  Transmission Date: 20111010
  Serious: Yes (Hospitalization)
  Sender: FDA-Public Use
  Company Number: PHHY2011DK31635

PATIENT
  Age: 65 Year
  Sex: Male
  Weight: 113 kg

DRUGS (6)
  1. FUROSEMIDE [Suspect]
     Dosage: LOW-DOSE
  2. FUROSEMIDE [Suspect]
     Dosage: 1500 MG
  3. BENDROFLUMETHIAZIDE [Suspect]
     Indication: MYOCARDIAL INFARCTION
     Dosage: 2.5 MG
  4. FUROSEMIDE [Suspect]
     Indication: MYOCARDIAL INFARCTION
     Dosage: 320 MG
  5. METOPROLOL SUCCINATE [Suspect]
     Indication: MYOCARDIAL INFARCTION
     Dosage: 150 MG
  6. SPIRONOLACTONE [Suspect]
     Indication: MYOCARDIAL INFARCTION
     Dosage: 50 MG

REACTIONS (13)
  - NORMOCHROMIC NORMOCYTIC ANAEMIA [None]
  - HEPATIC STEATOSIS [None]
  - DYSPNOEA [None]
  - PULMONARY CONGESTION [None]
  - WEIGHT INCREASED [None]
  - RENAL FAILURE ACUTE [None]
  - ASCITES [None]
  - BLOOD PRESSURE DECREASED [None]
  - CARDIOMEGALY [None]
  - EJECTION FRACTION DECREASED [None]
  - ABDOMINAL DISTENSION [None]
  - GENERALISED OEDEMA [None]
  - BLOOD PRESSURE SYSTOLIC ABNORMAL [None]
